FAERS Safety Report 23340306 (Version 4)
Quarter: 2024Q2

REPORT INFORMATION
  Report Type: Report from Study
  Country: BR (occurrence: BR)
  Receive Date: 20231227
  Receipt Date: 20240411
  Transmission Date: 20240716
  Serious: Yes (Other)
  Sender: FDA-Public Use
  Company Number: BR-TAKEDA-BR202011798

PATIENT
  Age: 19 Year
  Sex: Male
  Weight: 79 kg

DRUGS (9)
  1. IDURSULFASE [Suspect]
     Active Substance: IDURSULFASE
     Indication: Mucopolysaccharidosis II
     Dosage: 6 DOSAGE FORM, 1/WEEK
     Route: 065
     Dates: start: 200801
  2. IDURSULFASE [Suspect]
     Active Substance: IDURSULFASE
     Dosage: 6 DOSAGE FORM, 1/WEEK
     Route: 042
     Dates: start: 20090130
  3. IDURSULFASE [Suspect]
     Active Substance: IDURSULFASE
     Dosage: 5.8 DOSAGE FORM, 1/WEEK
     Route: 065
  4. IDURSULFASE [Suspect]
     Active Substance: IDURSULFASE
     Dosage: 6 DOSAGE FORM, 1/WEEK
     Route: 065
  5. IDURSULFASE [Suspect]
     Active Substance: IDURSULFASE
     Dosage: 6 DOSAGE FORM
     Route: 065
  6. IDURSULFASE [Suspect]
     Active Substance: IDURSULFASE
     Dosage: 7 DOSAGE FORM
     Route: 042
  7. IDURSULFASE [Suspect]
     Active Substance: IDURSULFASE
     Dosage: 5 DOSAGE FORM, 1/WEEK
     Route: 042
  8. IDURSULFASE [Suspect]
     Active Substance: IDURSULFASE
     Dosage: 7 DOSAGE FORM, 1/WEEK
     Route: 042
  9. IDURSULFASE [Suspect]
     Active Substance: IDURSULFASE
     Dosage: 6 DOSAGE FORM, 1/WEEK
     Route: 042

REACTIONS (19)
  - Macroglossia [Unknown]
  - Respiratory disorder [Recovering/Resolving]
  - Weight fluctuation [Recovering/Resolving]
  - Dengue fever [Unknown]
  - Eye pain [Unknown]
  - Pain [Unknown]
  - Tissue infiltration [Unknown]
  - Hypertrichosis [Unknown]
  - Knee deformity [Unknown]
  - Hand deformity [Unknown]
  - Joint stiffness [Unknown]
  - Weight decreased [Unknown]
  - H1N1 influenza [Recovered/Resolved]
  - Headache [Unknown]
  - Cough [Unknown]
  - Pyrexia [Unknown]
  - Product availability issue [Unknown]
  - Inappropriate schedule of product administration [Unknown]
  - Incorrect dose administered [Unknown]

NARRATIVE: CASE EVENT DATE: 20220418
